FAERS Safety Report 5840663-7 (Version None)
Quarter: 2008Q3

REPORT INFORMATION
  Report Type: 
  Country: None (occurrence: None)
  Receive Date: 20080811
  Receipt Date: 20080805
  Transmission Date: 20090109
  Serious: Yes (Death, Hospitalization)
  Sender: FDA-Public Use
  Company Number: PHHY2008JP16252

PATIENT
  Age: 17 Year
  Sex: Male

DRUGS (6)
  1. TEGRETOL [Suspect]
     Indication: EPILEPSY
     Dosage: 400 MG/DAY
  2. PHENYTOIN [Concomitant]
     Indication: EPILEPSY
     Dosage: 250 MG/DAY
  3. VALPROATE SODIUM [Concomitant]
     Indication: EPILEPSY
     Dosage: 600 MG/DAY
  4. LITHIUM CARBONATE [Concomitant]
     Indication: MENTAL RETARDATION
  5. LITHIUM CARBONATE [Concomitant]
     Indication: DYSTHYMIC DISORDER
  6. ORYZANOL [Concomitant]
     Indication: DYSTHYMIC DISORDER

REACTIONS (13)
  - ANTICONVULSANT DRUG LEVEL BELOW THERAPEUTIC [None]
  - BRADYCARDIA [None]
  - CARDIO-RESPIRATORY ARREST [None]
  - CONDITION AGGRAVATED [None]
  - CONVULSION [None]
  - DEPRESSED LEVEL OF CONSCIOUSNESS [None]
  - FALL [None]
  - GAIT DISTURBANCE [None]
  - GAZE PALSY [None]
  - HEADACHE [None]
  - LONG QT SYNDROME [None]
  - LOSS OF CONSCIOUSNESS [None]
  - NAUSEA [None]
